FAERS Safety Report 10410017 (Version 2)
Quarter: 2014Q3

REPORT INFORMATION
  Report Type: Report from Study
  Country: BR (occurrence: BR)
  Receive Date: 20140826
  Receipt Date: 20140918
  Transmission Date: 20150326
  Serious: Yes (Hospitalization, Other)
  Sender: FDA-Public Use
  Company Number: PHHY2014BR104236

PATIENT
  Sex: Female
  Weight: 64.5 kg

DRUGS (9)
  1. CAPOTEN [Suspect]
     Active Substance: CAPTOPRIL
     Dosage: UNK UKN, UNK
  2. DIOVAN [Suspect]
     Active Substance: VALSARTAN
     Dosage: 1 DF (80 MG) DAILY
     Route: 048
  3. DIURETICS [Suspect]
     Active Substance: UNSPECIFIED INGREDIENT
     Dosage: UNK UKN, UNK
  4. ATENOLOL. [Suspect]
     Active Substance: ATENOLOL
     Dosage: UNK UKN, UNK
  5. LOSARTAN [Suspect]
     Active Substance: LOSARTAN
     Dosage: UNKNOWN DOSE, AT NIGHT
  6. DIOVAN [Suspect]
     Active Substance: VALSARTAN
     Dosage: 160 MG, UNK
  7. DIOVAN [Suspect]
     Active Substance: VALSARTAN
     Indication: HYPERTENSION
     Dosage: 1 DF (160 MG) DAILY
     Route: 048
  8. DIOVAN [Suspect]
     Active Substance: VALSARTAN
     Dosage: 1 DF (80 MG) DAILY
     Route: 048
  9. OMEPRAZOLE SANDOZ [Suspect]
     Active Substance: OMEPRAZOLE
     Indication: ABDOMINAL DISCOMFORT
     Dosage: 1 DF DAILY
     Route: 048
     Dates: start: 2013

REACTIONS (9)
  - Macule [Unknown]
  - Hypertension [Unknown]
  - Emotional disorder [Unknown]
  - Blood pressure decreased [Unknown]
  - Bronchitis [Unknown]
  - Hypersensitivity [Unknown]
  - Dysstasia [Unknown]
  - Headache [Unknown]
  - Blood pressure inadequately controlled [Unknown]

NARRATIVE: CASE EVENT DATE: 2013
